FAERS Safety Report 25961428 (Version 1)
Quarter: 2025Q4

REPORT INFORMATION
  Report Type: Spontaneous
  Country: CN (occurrence: CN)
  Receive Date: 20251027
  Receipt Date: 20251027
  Transmission Date: 20260117
  Serious: Yes (Other)
  Sender: Onesource Specialty Pharma
  Company Number: CN-STRIDES ARCOLAB LIMITED-2025OS001031

PATIENT

DRUGS (8)
  1. MIDAZOLAM [Suspect]
     Active Substance: MIDAZOLAM
     Indication: Anaesthesia
     Dosage: 0.06 TO 0.08 MG/KG
     Route: 065
  2. FENTANYL [Suspect]
     Active Substance: FENTANYL
     Indication: Induction of anaesthesia
     Dosage: 40 TO 50 ?G/KG
     Route: 065
  3. FENTANYL [Suspect]
     Active Substance: FENTANYL
     Dosage: ANESTHESIA MAINTENANCE  BEFORE INITIATION OF EXTRACORPOREAL CIRCULATION
     Route: 065
  4. FENTANYL [Suspect]
     Active Substance: FENTANYL
     Dosage: ANESTHETIC MAINTENANCE REGIMEN AFTER EXTRACORPOREAL CIRCULATION
     Route: 065
  5. ROCURONIUM [Suspect]
     Active Substance: ROCURONIUM BROMIDE
     Indication: Induction of anaesthesia
     Dosage: 0.8 TO 1.0 MG/KG
     Route: 065
  6. ROCURONIUM [Suspect]
     Active Substance: ROCURONIUM BROMIDE
     Dosage: ANESTHESIA MAINTENANCE REGIMEN BEFORE INITIATION OF EXTRACORPOREAL CIRCULATION
     Route: 065
  7. PIPECURONIUM [Suspect]
     Active Substance: PIPECURONIUM
     Indication: Induction of anaesthesia
     Dosage: ANESTHETIC MAINTENANCE REGIMEN AFTER EXTRACORPOREAL CIRCULATION
     Route: 065
  8. DEXMEDETOMIDINE [Suspect]
     Active Substance: DEXMEDETOMIDINE
     Indication: Induction of anaesthesia
     Dosage: 0.2 MICROGRAM/KILOGRAM, QH
     Route: 042

REACTIONS (1)
  - Respiratory depression [Unknown]
